FAERS Safety Report 10025229 (Version 1)
Quarter: 2014Q1

REPORT INFORMATION
  Report Type: Spontaneous
  Country: US (occurrence: None)
  Receive Date: 20140318
  Receipt Date: 20140318
  Transmission Date: 20141002
  Serious: Yes (Other)
  Sender: FDA-Public Use
  Company Number: COL_15448_2014

PATIENT
  Age: 65 Year
  Sex: Female

DRUGS (1)
  1. COLGATE OPTIC WHITE SPARKLING MINT [Suspect]
     Indication: PRODUCT USED FOR UNKNOWN INDICATION
     Route: 048
     Dates: start: 20140219, end: 20140219

REACTIONS (3)
  - Hypersensitivity [None]
  - Pharyngeal oedema [None]
  - Swelling face [None]
